FAERS Safety Report 8434671-X (Version None)
Quarter: 2012Q2

REPORT INFORMATION
  Report Type: 
  Country: None (occurrence: None)
  Receive Date: 20120323
  Receipt Date: 20110902
  Transmission Date: 20120825
  Serious: Yes (Other)
  Sender: FDA-Public Use
  Company Number: 163-21880-11064066

PATIENT
  Age: 61 Year
  Sex: Female

DRUGS (5)
  1. ASA (ACETYLSALICYLIC [Concomitant]
  2. DEXAMETHASONE [Concomitant]
  3. VELCADE [Concomitant]
  4. REVLIMID [Suspect]
     Indication: MULTIPLE MYELOMA
     Dosage: 15 MG, DAYS 1-21 EVERY 28 DAY CYCLE, PO,  10 MG, DAILY X 21 DAYS, PO
     Route: 048
     Dates: start: 20110801
  5. REVLIMID [Suspect]
     Indication: MULTIPLE MYELOMA
     Dosage: 15 MG, DAYS 1-21 EVERY 28 DAY CYCLE, PO,  10 MG, DAILY X 21 DAYS, PO
     Route: 048
     Dates: start: 20101110, end: 20110721

REACTIONS (2)
  - PLATELET COUNT DECREASED [None]
  - WHITE BLOOD CELL COUNT DECREASED [None]
